FAERS Safety Report 4672606-6 (Version None)
Quarter: 2005Q2

REPORT INFORMATION
  Report Type: 
  Country: None (occurrence: None)
  Receive Date: 20050524
  Receipt Date: 20050516
  Transmission Date: 20051028
  Serious: Yes (Hospitalization, Disabling)
  Sender: FDA-Public Use
  Company Number: HCM-0081

PATIENT
  Age: 64 Year
  Sex: Male

DRUGS (13)
  1. HYCAMTIN [Suspect]
     Indication: SMALL CELL LUNG CANCER STAGE UNSPECIFIED
     Dosage: 1.5MG PER DAY
     Route: 042
     Dates: start: 20040624, end: 20040629
  2. FAMOTIDINE [Concomitant]
     Dosage: 40MG PER DAY
     Route: 048
     Dates: start: 20040629, end: 20040729
  3. LOXOPROFEN SODIUM [Concomitant]
     Dosage: 180MG PER DAY
     Route: 048
     Dates: start: 20040629, end: 20040729
  4. TEPRENONE [Concomitant]
     Dosage: 150MG PER DAY
     Route: 048
     Dates: start: 20040629, end: 20040729
  5. MAGNESIUM OXIDE [Concomitant]
     Dosage: 1980MG PER DAY
     Route: 048
     Dates: start: 20040629, end: 20040729
  6. CARBAMAZEPINE [Concomitant]
     Dosage: 600MG PER DAY
     Route: 048
     Dates: start: 20040629, end: 20040729
  7. SENNOSIDE [Concomitant]
     Dosage: 24MG PER DAY
     Route: 048
     Dates: start: 20040629, end: 20040729
  8. MOSAPRIDE CITRATE [Concomitant]
     Dosage: 7.5MG PER DAY
     Route: 048
     Dates: start: 20040629, end: 20040729
  9. MORPHINE SULFATE [Concomitant]
     Dosage: 40MG PER DAY
     Route: 048
     Dates: start: 20040701, end: 20040729
  10. CONCENTRATED GLYCERIN + FRUCTOSE [Concomitant]
     Route: 042
     Dates: start: 20040629, end: 20040729
  11. DEXAMETHASONE SODIUM PHOSPHATE [Concomitant]
     Dosage: 2MG PER DAY
     Route: 042
     Dates: start: 20040629, end: 20040729
  12. NEO-MINOPHAGEN C [Concomitant]
     Dosage: 2AMP PER DAY
     Route: 042
     Dates: start: 20040712, end: 20040712
  13. IMIPENEM CILASTATIN [Concomitant]
     Dosage: 2U PER DAY
     Route: 042
     Dates: start: 20040712, end: 20040721

REACTIONS (15)
  - ALANINE AMINOTRANSFERASE INCREASED [None]
  - ANAEMIA [None]
  - ASPARTATE AMINOTRANSFERASE INCREASED [None]
  - BLOOD ALKALINE PHOSPHATASE INCREASED [None]
  - BLOOD CHLORIDE DECREASED [None]
  - BLOOD ELECTROLYTES ABNORMAL [None]
  - BLOOD LACTATE DEHYDROGENASE INCREASED [None]
  - BLOOD SODIUM DECREASED [None]
  - DEHYDRATION [None]
  - HAEMOGLOBIN DECREASED [None]
  - HEPATIC FUNCTION ABNORMAL [None]
  - LYMPHOCYTE COUNT DECREASED [None]
  - MONOCYTE COUNT INCREASED [None]
  - RED BLOOD CELL COUNT DECREASED [None]
  - WHITE BLOOD CELL DISORDER [None]
